FAERS Safety Report 9355290 (Version 1)
Quarter: 2013Q2

REPORT INFORMATION
  Report Type: Spontaneous
  Country: US (occurrence: US)
  Receive Date: 20130619
  Receipt Date: 20130619
  Transmission Date: 20140414
  Serious: Yes (Hospitalization)
  Sender: FDA-Public Use
  Company Number: US-BAYER-2013-072513

PATIENT
  Age: 25 Year
  Sex: Female
  Weight: 107.3 kg

DRUGS (21)
  1. YAZ [Suspect]
  2. VANIQA [Concomitant]
     Dosage: UNK
     Dates: start: 20061025
  3. AMOXICILLIN [Concomitant]
     Dosage: 500 MG, UNK
  4. BACTRIM [Concomitant]
     Indication: URINARY TRACT INFECTION
  5. PYRIDIUM [Concomitant]
     Indication: URINARY TRACT INFECTION
  6. FLEXERIL [Concomitant]
     Indication: BACK INJURY
  7. CYCLOBENZAPRINE [Concomitant]
     Indication: BACK INJURY
  8. LOMOTIL [DIPHENOXYLATE HYDROCHLORIDE] [Concomitant]
     Dosage: UNK
     Dates: start: 20061205
  9. PHENERGAN [Concomitant]
     Dosage: 25 MG, UNK
     Dates: start: 20061205
  10. CLINDAMYCIN [Concomitant]
     Dosage: UNK MG, UNK
  11. LEVAQUIN [Concomitant]
     Dosage: 500 MG, UNK
     Route: 042
     Dates: start: 20061206
  12. KLOR-CON [Concomitant]
     Dosage: 20 MEQ, UNK
  13. DICYCLOMINE [Concomitant]
     Dosage: 10 MG, UNK
  14. CEPHALEXIN [Concomitant]
     Dosage: 500 MG, UNK
  15. LIDODERM [Concomitant]
     Dosage: 5 %, UNK
     Dates: start: 20061127
  16. LIDODERM [Concomitant]
     Dosage: 5 %, UNK
     Dates: start: 20061215
  17. XANAX [Concomitant]
     Indication: PANIC ATTACK
     Dosage: 2 MG, UNK
  18. PROZAC [Concomitant]
     Indication: PANIC ATTACK
     Dosage: 20 MG, UNK
  19. HYDROCODONE [Concomitant]
     Indication: BACK INJURY
     Dosage: 5/500 MG
  20. KEFLEX [Concomitant]
  21. HYDROCODONE W/APAP [Concomitant]

REACTIONS (1)
  - Thrombophlebitis superficial [Recovered/Resolved]
